FAERS Safety Report 21358808 (Version 6)
Quarter: 2022Q4

REPORT INFORMATION
  Report Type: Spontaneous
  Country: US (occurrence: US)
  Receive Date: 20220921
  Receipt Date: 20221220
  Transmission Date: 20230112
  Serious: No
  Sender: FDA-Public Use
  Company Number: US-PFIZER INC-202201107559

PATIENT
  Age: 12 Year
  Sex: Female
  Weight: 30.39 kg

DRUGS (1)
  1. GENOTROPIN [Suspect]
     Active Substance: SOMATROPIN
     Indication: Growth hormone deficiency
     Dosage: 1.6MG AND 1.8MG ALTERNATING SIX DAYS A WEEK TO MAKE 1.7MG THROUGH THE NEEDLE ALTERNATE

REACTIONS (4)
  - Product administered at inappropriate site [Unknown]
  - Drug dose omission by device [Unknown]
  - Device mechanical issue [Unknown]
  - Device leakage [Unknown]

NARRATIVE: CASE EVENT DATE: 20220801
